FAERS Safety Report 20542986 (Version 3)
Quarter: 2022Q1

REPORT INFORMATION
  Report Type: Spontaneous
  Country: PA (occurrence: PA)
  Receive Date: 20220302
  Receipt Date: 20220321
  Transmission Date: 20220424
  Serious: Yes (Hospitalization, Other)
  Sender: FDA-Public Use
  Company Number: PA-PFIZER INC-202200332908

PATIENT
  Sex: Male

DRUGS (1)
  1. SUTENT [Suspect]
     Active Substance: SUNITINIB MALATE
     Dosage: 2 DF, DAILY

REACTIONS (2)
  - Nephrolithiasis [Unknown]
  - Nephrectomy [Unknown]

NARRATIVE: CASE EVENT DATE: 20220201
